FAERS Safety Report 12474555 (Version 1)
Quarter: 2016Q2

REPORT INFORMATION
  Report Type: Spontaneous
  Country: US (occurrence: None)
  Receive Date: 20160616
  Receipt Date: 20160616
  Transmission Date: 20160815
  Serious: Yes (Hospitalization)
  Sender: FDA-Public Use
  Company Number: None

PATIENT
  Age: 68 Year
  Sex: Female
  Weight: 85.73 kg

DRUGS (17)
  1. ATIVAN [Concomitant]
     Active Substance: LORAZEPAM
  2. DOXIL [Suspect]
     Active Substance: DOXORUBICIN HYDROCHLORIDE
     Indication: MALIGNANT PERITONEAL NEOPLASM
     Route: 042
     Dates: start: 20160210, end: 20160601
  3. MAGNESIUM OXIDE. [Concomitant]
     Active Substance: MAGNESIUM OXIDE
  4. PROTONIX [Concomitant]
     Active Substance: PANTOPRAZOLE SODIUM
  5. CARBOPLATIN AUC 5 IV [Suspect]
     Active Substance: CARBOPLATIN
     Indication: MALIGNANT PERITONEAL NEOPLASM
     Route: 042
     Dates: start: 20160210, end: 20160601
  6. EVEROLIMUS [Concomitant]
     Active Substance: EVEROLIMUS
  7. NEURONTIN [Concomitant]
     Active Substance: GABAPENTIN
  8. NEXIUM [Concomitant]
     Active Substance: ESOMEPRAZOLE MAGNESIUM
  9. CARAFATE [Concomitant]
     Active Substance: SUCRALFATE
  10. QUINAPRIL. [Concomitant]
     Active Substance: QUINAPRIL
  11. ZOFRAN [Concomitant]
     Active Substance: ONDANSETRON HYDROCHLORIDE
  12. INSULIN PUMP [Concomitant]
     Active Substance: INSULIN NOS
  13. COMPAZINE [Concomitant]
     Active Substance: PROCHLORPERAZINE MALEATE
  14. SYNTHROID [Concomitant]
     Active Substance: LEVOTHYROXINE SODIUM
  15. IMODIUM [Concomitant]
     Active Substance: LOPERAMIDE HYDROCHLORIDE
  16. HYDROCORTISONE CREAM [Concomitant]
     Active Substance: HYDROCORTISONE
  17. MARINOL [Concomitant]
     Active Substance: DRONABINOL

REACTIONS (16)
  - Fatigue [None]
  - Nausea [None]
  - Lung neoplasm malignant [None]
  - Impaired gastric emptying [None]
  - Hypoglycaemia [None]
  - Pulmonary embolism [None]
  - Hypokalaemia [None]
  - Vomiting [None]
  - Blood magnesium decreased [None]
  - Barrett^s oesophagus [None]
  - Hypomagnesaemia [None]
  - Tachycardia [None]
  - Back pain [None]
  - Weight decreased [None]
  - Hyperglycaemia [None]
  - Haemorrhagic anaemia [None]

NARRATIVE: CASE EVENT DATE: 20160601
